FAERS Safety Report 18170239 (Version 7)
Quarter: 2020Q4

REPORT INFORMATION
  Report Type: Spontaneous
  Country: US (occurrence: US)
  Receive Date: 20200819
  Receipt Date: 20201201
  Transmission Date: 20210113
  Serious: Yes (Other)
  Sender: FDA-Public Use
  Company Number: US-PFIZER INC-2020319641

PATIENT
  Age: 67 Year
  Sex: Female
  Weight: 61.23 kg

DRUGS (3)
  1. DILANTIN [Suspect]
     Active Substance: PHENYTOIN
     Dosage: 300 MG, 2X/DAY (3- 100MG CAPSULES ORAL BID(TWICE A DAY))
     Route: 048
  2. DILANTIN [Suspect]
     Active Substance: PHENYTOIN
     Indication: SEIZURE
     Dosage: 600 MG, DAILY (6-100MG CAPSULES TAKEN DAILY)
     Route: 048
  3. DILANTIN [Suspect]
     Active Substance: PHENYTOIN
     Dosage: 300 MG, 3X/DAY (3- 100MG CAPSULES ORAL TID/3 PO (ORAL) TID (THREE TIMES A DAY))
     Route: 048

REACTIONS (2)
  - Prescribed overdose [Unknown]
  - Deafness [Unknown]
